FAERS Safety Report 21913360 (Version 3)
Quarter: 2023Q1

REPORT INFORMATION
  Report Type: Spontaneous
  Country: US (occurrence: US)
  Receive Date: 20230125
  Receipt Date: 20230214
  Transmission Date: 20230417
  Serious: Yes (Other)
  Sender: FDA-Public Use
  Company Number: US-009507513-2301USA007175

PATIENT
  Sex: Male

DRUGS (5)
  1. KEYTRUDA [Suspect]
     Active Substance: PEMBROLIZUMAB
     Indication: Oesophageal carcinoma
     Dosage: 200 MG, EVERY 21 DAYS (Q3W)
     Dates: start: 20221014
  2. ASPIRIN [Concomitant]
     Active Substance: ASPIRIN
  3. LORATADINE [Concomitant]
     Active Substance: LORATADINE
  4. HERCEPTIN [Concomitant]
     Active Substance: TRASTUZUMAB
  5. FLUOROURACIL [Concomitant]
     Active Substance: FLUOROURACIL

REACTIONS (7)
  - Tumour hyperprogression [Not Recovered/Not Resolved]
  - Neuropathy peripheral [Not Recovered/Not Resolved]
  - Malignant neoplasm progression [Unknown]
  - Bone pain [Not Recovered/Not Resolved]
  - Neoplasm [Not Recovered/Not Resolved]
  - Drug ineffective [Not Recovered/Not Resolved]
  - Product use complaint [Unknown]
